FAERS Safety Report 14475789 (Version 11)
Quarter: 2018Q3

REPORT INFORMATION
  Report Type: Spontaneous
  Country: BR (occurrence: BR)
  Receive Date: 20180201
  Receipt Date: 20180702
  Transmission Date: 20181010
  Serious: Yes (Hospitalization, Other)
  Sender: FDA-Public Use
  Company Number: BR-PFIZER INC-2017540553

PATIENT
  Age: 52 Year
  Sex: Male

DRUGS (9)
  1. PANTOPRAZOLE [Concomitant]
     Active Substance: PANTOPRAZOLE
     Indication: GASTRITIS
     Dosage: UNK, DAILY
  2. SUTENT [Suspect]
     Active Substance: SUNITINIB MALATE
     Indication: RENAL CANCER METASTATIC
     Dosage: 50 MG, CYCLIC (ONCE A DAY FOR 28 DAYS, PAUSE FOR 14 DAYS)
     Dates: start: 20171215
  3. ESOMEPRAZOLE [Concomitant]
     Active Substance: ESOMEPRAZOLE
     Dosage: UNK
  4. SUTENT [Suspect]
     Active Substance: SUNITINIB MALATE
     Dosage: UNK UNK, CYCLIC
  5. TYLEX /00116401/ [Concomitant]
     Active Substance: ACETAMINOPHEN\CODEINE PHOSPHATE
     Dosage: UNK, AS NEEDED (SPORADICALLY)
  6. AMITRIPTYLINE HCL [Concomitant]
     Active Substance: AMITRIPTYLINE
     Dosage: UNK
  7. DIPYRONE [Concomitant]
     Active Substance: DIPYRONE
     Dosage: UNK, AS NEEDED (SPORADICALLY)
  8. ANNITA [Concomitant]
     Active Substance: NITAZOXANIDE
     Indication: DYSPEPSIA
     Dosage: 500 MG, UNK
  9. TAMISA [Concomitant]
     Active Substance: ETHINYL ESTRADIOL\GESTODENE
     Dosage: UNK

REACTIONS (28)
  - Condition aggravated [Recovering/Resolving]
  - Blood pressure fluctuation [Not Recovered/Not Resolved]
  - Diarrhoea [Recovered/Resolved]
  - Platelet count decreased [Unknown]
  - Pain in extremity [Recovered/Resolved]
  - Feeling of body temperature change [Recovered/Resolved]
  - Fear [Recovered/Resolved]
  - Blood triglycerides increased [Unknown]
  - Inflammation [Unknown]
  - Cerebral disorder [Recovered/Resolved]
  - Wound [Recovering/Resolving]
  - Myalgia [Recovering/Resolving]
  - Pharyngeal inflammation [Not Recovered/Not Resolved]
  - Memory impairment [Not Recovered/Not Resolved]
  - Fatigue [Recovering/Resolving]
  - Retching [Recovered/Resolved]
  - Discomfort [Unknown]
  - Insomnia [Recovering/Resolving]
  - Constipation [Unknown]
  - Lip dry [Unknown]
  - Pain [Unknown]
  - Erythema [Unknown]
  - Dysentery [Recovering/Resolving]
  - Reflux gastritis [Recovering/Resolving]
  - Arthralgia [Unknown]
  - Condition aggravated [Recovering/Resolving]
  - Malaise [Recovered/Resolved]
  - Hyperkeratosis [Unknown]

NARRATIVE: CASE EVENT DATE: 201711
